FAERS Safety Report 5257385-6 (Version None)
Quarter: 2007Q1

REPORT INFORMATION
  Report Type: 
  Country: None (occurrence: None)
  Receive Date: 20070307
  Receipt Date: 20060712
  Transmission Date: 20070707
  Serious: No
  Sender: FDA-Public Use
  Company Number: US-GLAXOSMITHKLINE-A0612009A

PATIENT
  Age: 66 Year
  Sex: Female

DRUGS (3)
  1. REQUIP [Suspect]
     Indication: RESTLESS LEGS SYNDROME
     Dosage: 1MG PER DAY
     Route: 048
     Dates: start: 20051215, end: 20060601
  2. LIPITOR [Concomitant]
  3. ATENOLOL [Concomitant]

REACTIONS (7)
  - BLOOD PRESSURE DECREASED [None]
  - DIZZINESS [None]
  - NAUSEA [None]
  - OEDEMA PERIPHERAL [None]
  - PAIN IN EXTREMITY [None]
  - SOMNOLENCE [None]
  - THERAPEUTIC RESPONSE UNEXPECTED [None]
